FAERS Safety Report 5285639-6 (Version None)
Quarter: 2007Q1

REPORT INFORMATION
  Report Type: 
  Country: None (occurrence: None)
  Receive Date: 20070116
  Receipt Date: 20061205
  Transmission Date: 20070707
  Serious: No
  Sender: FDA-Public Use
  Company Number: 2006SP004284

PATIENT
  Age: 59 Year
  Sex: Male

DRUGS (7)
  1. LUNESTA [Suspect]
     Indication: INSOMNIA
     Dosage: 3 MG;ORAL
     Route: 048
  2. WELLBUTRIN [Concomitant]
  3. KLONOPIN [Concomitant]
  4. VYTORIN [Concomitant]
  5. TRICOR [Concomitant]
  6. LYRICA [Concomitant]
  7. PROVIGIL [Concomitant]

REACTIONS (1)
  - HEADACHE [None]
